FAERS Safety Report 20654325 (Version 2)
Quarter: 2022Q2

REPORT INFORMATION
  Report Type: Spontaneous
  Country: BR (occurrence: BR)
  Receive Date: 20220330
  Receipt Date: 20220406
  Transmission Date: 20220721
  Serious: Yes (Other)
  Sender: FDA-Public Use
  Company Number: BR-PFIZER INC-202200483008

PATIENT
  Age: 37 Year
  Sex: Female

DRUGS (1)
  1. ETHINYL ESTRADIOL\LEVONORGESTREL [Suspect]
     Active Substance: ETHINYL ESTRADIOL\LEVONORGESTREL
     Indication: Leiomyoma
     Dosage: UNK
     Dates: end: 2021

REACTIONS (2)
  - Heavy menstrual bleeding [Not Recovered/Not Resolved]
  - Leiomyoma [Not Recovered/Not Resolved]
